FAERS Safety Report 26153214 (Version 1)
Quarter: 2025Q4

REPORT INFORMATION
  Report Type: Report from Study
  Country: ZA (occurrence: ZA)
  Receive Date: 20251214
  Receipt Date: 20251214
  Transmission Date: 20260118
  Serious: Yes (Other)
  Sender: ROCHE
  Company Number: ZA-ROCHE-10000240711

PATIENT
  Sex: Female

DRUGS (3)
  1. VABYSMO [Suspect]
     Active Substance: FARICIMAB-SVOA
     Indication: Macular degeneration
  2. VABYSMO [Suspect]
     Active Substance: FARICIMAB-SVOA
     Indication: Neovascular age-related macular degeneration
  3. BROLUCIZUMAB [Concomitant]
     Active Substance: BROLUCIZUMAB

REACTIONS (3)
  - Optical coherence tomography abnormal [Unknown]
  - Visual acuity tests abnormal [Unknown]
  - Retinal thickening [Unknown]
